FAERS Safety Report 9403495 (Version 1)
Quarter: 2013Q3

REPORT INFORMATION
  Report Type: Spontaneous
  Country: US (occurrence: US)
  Receive Date: 20130716
  Receipt Date: 20130716
  Transmission Date: 20140515
  Serious: Yes (Other)
  Sender: FDA-Public Use
  Company Number: US-RB-056073-13

PATIENT
  Sex: Female

DRUGS (5)
  1. SUBOXONE FILM [Suspect]
     Indication: DRUG DEPENDENCE
     Dosage: SUBOXONE FILM
     Route: 060
     Dates: start: 2011
  2. SUBOXONE FILM [Suspect]
     Dosage: SUBOXONE FILM
     Route: 060
     Dates: end: 201302
  3. SUBOXONE FILM [Suspect]
     Dosage: SUBOXONE FILM; CUTTING THE FILM
     Route: 060
     Dates: start: 201302, end: 20130707
  4. VENTOLIN [Concomitant]
     Indication: ASTHMA
     Dosage: INHALATION; DOSING DETAILS UNKNOWN
  5. ANTIHYPERTENSIVE [Concomitant]
     Indication: HYPERTENSION
     Dosage: DOSING DETAILS UNKNOWN
     Route: 048

REACTIONS (8)
  - Joint swelling [Not Recovered/Not Resolved]
  - Cervix carcinoma [Recovered/Resolved]
  - Wrong technique in drug usage process [Not Recovered/Not Resolved]
  - Malaise [Not Recovered/Not Resolved]
  - Hyperhidrosis [Not Recovered/Not Resolved]
  - Arthralgia [Not Recovered/Not Resolved]
  - Abdominal discomfort [Not Recovered/Not Resolved]
  - Dyspnoea [Not Recovered/Not Resolved]
